FAERS Safety Report 12945245 (Version 2)
Quarter: 2017Q1

REPORT INFORMATION
  Report Type: Spontaneous
  Country: US (occurrence: US)
  Receive Date: 20161115
  Receipt Date: 20170104
  Transmission Date: 20170428
  Serious: Yes (Other)
  Sender: FDA-Public Use
  Company Number: US-PFIZER INC-2016527485

PATIENT
  Age: 41 Year
  Sex: Female

DRUGS (1)
  1. DOSTINEX [Suspect]
     Active Substance: CABERGOLINE
     Dosage: UNK

REACTIONS (1)
  - Schizoaffective disorder [Unknown]
